FAERS Safety Report 8183446-8 (Version None)
Quarter: 2012Q1

REPORT INFORMATION
  Report Type: 
  Country: None (occurrence: None)
  Receive Date: 20120305
  Receipt Date: 20120224
  Transmission Date: 20120608
  Serious: Yes (Hospitalization)
  Sender: FDA-Public Use
  Company Number: JP-EISAI INC-E7389-02126-SPO-JP

PATIENT
  Age: 46 Year
  Sex: Female

DRUGS (2)
  1. HERCEPTIN [Concomitant]
     Route: 041
  2. HALAVEN [Suspect]
     Indication: BREAST CANCER RECURRENT
     Route: 065
     Dates: start: 20120204

REACTIONS (2)
  - PNEUMONIA [None]
  - NEUTROPENIA [None]
